FAERS Safety Report 6205565-5 (Version None)
Quarter: 2009Q2

REPORT INFORMATION
  Report Type: 
  Country: None (occurrence: None)
  Receive Date: 20090527
  Receipt Date: 20090401
  Transmission Date: 20091009
  Serious: No
  Sender: FDA-Public Use
  Company Number: US-ABBOTT-09P-163-0566256-00

PATIENT
  Sex: Female
  Weight: 83.99 kg

DRUGS (11)
  1. SIMCOR [Suspect]
     Indication: BLOOD CHOLESTEROL INCREASED
     Route: 048
     Dates: start: 20090306, end: 20090404
  2. SIMCOR [Suspect]
     Indication: BLOOD TRIGLYCERIDES INCREASED
  3. METFORMIN HCL [Concomitant]
     Indication: DIABETES MELLITUS
     Route: 048
  4. LEVOTHYROXINE SODIUM [Concomitant]
     Indication: HYPOTHYROIDISM
     Route: 048
  5. CLONAZEPAM [Concomitant]
     Indication: DEPRESSION
     Route: 048
  6. GLIMEPIRIDE [Concomitant]
     Indication: DIABETES MELLITUS
     Dosage: ONE AND ONE HALF TABLETS DAILY
     Route: 048
  7. COREG [Concomitant]
     Indication: HYPERTENSION
     Route: 048
  8. ASPIRIN [Concomitant]
     Indication: PROPHYLAXIS
     Route: 048
  9. ASPIRIN [Concomitant]
     Indication: FLUSHING
  10. AMITRIPTLINE HYDROCHLORIDE TAB [Concomitant]
     Indication: DEPRESSION
     Route: 048
  11. AMITRIPTLINE HYDROCHLORIDE TAB [Concomitant]
     Indication: INSOMNIA

REACTIONS (6)
  - DYSPHONIA [None]
  - EYELID OEDEMA [None]
  - HOT FLUSH [None]
  - PRURITUS [None]
  - RASH [None]
  - THROAT IRRITATION [None]
